FAERS Safety Report 7229175-6 (Version None)
Quarter: 2011Q1

REPORT INFORMATION
  Report Type: 
  Country: None (occurrence: None)
  Receive Date: 20110117
  Receipt Date: 20110110
  Transmission Date: 20110831
  Serious: Yes (Hospitalization, Disabling)
  Sender: FDA-Public Use
  Company Number: FR-PFIZER INC-2011005458

PATIENT
  Age: 73 Year
  Sex: Male

DRUGS (10)
  1. EUPHYLLINE [Concomitant]
     Dosage: 200 MG, 2X/DAY
  2. OMEPRAZOLE [Concomitant]
     Dosage: 20 MG, 1X/DAY
  3. SYMBICORT [Concomitant]
     Dosage: UNK
  4. ART 50 [Concomitant]
     Dosage: 50 MG, 1X/DAY
  5. SPIRIVA [Concomitant]
     Dosage: UNK
  6. AMLODIPINE [Concomitant]
     Dosage: 10 MG, 1X/DAY
  7. RILMENIDINE [Concomitant]
     Dosage: 1 MG, 2X/DAY
  8. CORDARONE [Concomitant]
     Dosage: ONCE A DAY, 5 DAYS OUT OF 7 DAYS
  9. EFFEXOR XR [Suspect]
     Dosage: 75 MG, 1X/DAY
  10. KARDEGIC [Suspect]
     Dosage: 75 MG, 1X/DAY
     Route: 048

REACTIONS (1)
  - SUBDURAL HAEMATOMA [None]
